FAERS Safety Report 9664135 (Version 2)
Quarter: 2014Q2

REPORT INFORMATION
  Report Type: Spontaneous
  Country: US (occurrence: US)
  Receive Date: 20131101
  Receipt Date: 20140502
  Transmission Date: 20141212
  Serious: Yes (Hospitalization)
  Sender: FDA-Public Use
  Company Number: US-B.I. PHARMACEUTICALS,INC./RIDGEFIELD-2013-BI-34147BP

PATIENT
  Age: 51 Year
  Sex: Male
  Weight: 136.08 kg

DRUGS (14)
  1. PRADAXA [Suspect]
     Indication: ATRIAL FIBRILLATION
     Dosage: 20 MG
     Route: 065
     Dates: start: 20110810, end: 20120918
  2. VERAPAMIL XR [Concomitant]
     Dosage: 180 MG
     Route: 048
     Dates: start: 2004
  3. TRICOR [Concomitant]
     Dosage: 145 MG
     Route: 048
     Dates: start: 2008
  4. SINGULAIR [Concomitant]
     Dosage: 10 MG
     Route: 048
     Dates: start: 2010
  5. ADVAIR DISKUS [Concomitant]
     Route: 055
     Dates: start: 2008
  6. ALBUTEROL [Concomitant]
     Route: 055
  7. AUGMENTIN [Concomitant]
     Dosage: 1750 MG
     Route: 048
     Dates: start: 20120917
  8. HYDROCODONE [Concomitant]
     Route: 065
  9. ASPIRIN [Concomitant]
     Dosage: 325 MG
     Route: 048
  10. PROAIR [Concomitant]
     Route: 065
     Dates: start: 2010, end: 2013
  11. MONTELUKAST [Concomitant]
     Route: 065
  12. DEXAMETHASONE [Concomitant]
     Route: 065
  13. AZITHROMYCIN [Concomitant]
     Route: 065
  14. MUCINEX [Concomitant]
     Route: 065

REACTIONS (1)
  - Lower gastrointestinal haemorrhage [Recovered/Resolved]
